FAERS Safety Report 9800252 (Version 2)
Quarter: 2014Q1

REPORT INFORMATION
  Report Type: Report from Study
  Country: US (occurrence: US)
  Receive Date: 20140106
  Receipt Date: 20140114
  Transmission Date: 20141002
  Serious: Yes (Death)
  Sender: FDA-Public Use
  Company Number: GXBR2013US002206

PATIENT
  Sex: Female

DRUGS (5)
  1. ENOXAPARIN SODIUM [Suspect]
     Indication: DEEP VEIN THROMBOSIS
     Dosage: 80 MG, QD
     Route: 058
  2. ENOXAPARIN SODIUM [Suspect]
     Indication: PULMONARY EMBOLISM
  3. CHEMOTHERAPEUTICS [Concomitant]
     Indication: BREAST CANCER RECURRENT
     Dosage: UNK DF, UNK
  4. MORPHINE [Concomitant]
     Indication: BREAKTHROUGH PAIN
     Dosage: UNK DF, UNK
     Route: 048
  5. MORPHINE [Concomitant]
     Indication: CANCER PAIN
     Dosage: UNK DF, UNK
     Route: 042

REACTIONS (4)
  - Breast cancer [Fatal]
  - Metastases to bone [Fatal]
  - Bone pain [Fatal]
  - Concomitant disease progression [Fatal]
